FAERS Safety Report 23940114 (Version 1)
Quarter: 2024Q2

REPORT INFORMATION
  Report Type: Spontaneous
  Country: US (occurrence: None)
  Receive Date: 20240605
  Receipt Date: 20240605
  Transmission Date: 20240716
  Serious: No
  Sender: FDA-Public Use
  Company Number: 2024A128256

PATIENT

DRUGS (1)
  1. ESOMEPRAZOLE [Suspect]
     Active Substance: ESOMEPRAZOLE
     Route: 048

REACTIONS (6)
  - Eructation [Unknown]
  - Hiccups [Unknown]
  - Muscle spasms [Unknown]
  - Abdominal distension [Unknown]
  - Eosinophilic oesophagitis [Unknown]
  - Gastrooesophageal reflux disease [Unknown]
